FAERS Safety Report 7248884-6 (Version None)
Quarter: 2011Q1

REPORT INFORMATION
  Report Type: 
  Country: None (occurrence: None)
  Receive Date: 20110128
  Receipt Date: 20101021
  Transmission Date: 20110831
  Serious: Yes (Hospitalization, Other)
  Sender: FDA-Public Use
  Company Number: US-BAYER-200939619NA

PATIENT
  Sex: Female
  Weight: 54.422 kg

DRUGS (5)
  1. YAZ [Suspect]
     Route: 048
     Dates: start: 20081001, end: 20090401
  2. YASMIN [Suspect]
     Indication: PRODUCT USED FOR UNKNOWN INDICATION
     Dosage: UNK
     Route: 048
     Dates: start: 20070801, end: 20090401
  3. YAZ [Suspect]
     Indication: CONTRACEPTION
     Dosage: UNK
     Route: 048
     Dates: start: 20070701, end: 20090401
  4. ADVIL [Concomitant]
     Dosage: UNK UNK, PRN
  5. YASMIN [Suspect]
     Route: 048
     Dates: start: 20081001, end: 20090401

REACTIONS (6)
  - DYSARTHRIA [None]
  - BLOOD POTASSIUM INCREASED [None]
  - HEMIPARESIS [None]
  - FATIGUE [None]
  - CEREBROVASCULAR ACCIDENT [None]
  - CEREBRAL INFARCTION [None]
